FAERS Safety Report 10706166 (Version 1)
Quarter: 2015Q1

REPORT INFORMATION
  Report Type: Spontaneous
  Country: US (occurrence: US)
  Receive Date: 20150113
  Receipt Date: 20150113
  Transmission Date: 20150721
  Serious: Yes (Other)
  Sender: FDA-Public Use
  Company Number: US-RB-072026-15

PATIENT
  Sex: Male

DRUGS (1)
  1. MUCINEX [Suspect]
     Active Substance: GUAIFENESIN
     Indication: PRODUCT USED FOR UNKNOWN INDICATION
     Dosage: PATIENT TOOK THE DRUG ON AN UNKNOWN DATE AT AN UNSPECIFIED DOSING
     Route: 065

REACTIONS (2)
  - Unevaluable event [Unknown]
  - Haemoptysis [Unknown]
